FAERS Safety Report 6812242-6 (Version None)
Quarter: 2010Q2

REPORT INFORMATION
  Report Type: 
  Country: None (occurrence: None)
  Receive Date: 20100628
  Receipt Date: 20100512
  Transmission Date: 20101027
  Serious: No
  Sender: FDA-Public Use
  Company Number: LEO-2010-00366

PATIENT
  Age: 62 Year
  Sex: Female

DRUGS (1)
  1. DOVONEX [Suspect]
     Indication: PSORIASIS
     Dosage: 2 IN 1 D), TOPICAL
     Route: 061
     Dates: start: 20100325, end: 20100329

REACTIONS (2)
  - DRUG ADMINISTERED AT INAPPROPRIATE SITE [None]
  - EMOTIONAL DISTRESS [None]
